FAERS Safety Report 20146321 (Version 1)
Quarter: 2021Q4

REPORT INFORMATION
  Report Type: Spontaneous
  Country: HU (occurrence: HU)
  Receive Date: 20211203
  Receipt Date: 20211203
  Transmission Date: 20220303
  Serious: Yes (Other)
  Sender: FDA-Public Use
  Company Number: HU-NOVARTISPH-NVSC2021HU268529

PATIENT
  Sex: Female

DRUGS (5)
  1. KISQALI [Suspect]
     Active Substance: RIBOCICLIB
     Indication: Breast cancer metastatic
     Dosage: 200 MG (1X3 TABLET)
     Route: 065
     Dates: start: 20190927, end: 20200404
  2. KISQALI [Suspect]
     Active Substance: RIBOCICLIB
     Dosage: 200 MG (2X)
     Route: 065
     Dates: start: 20200404, end: 20201204
  3. KISQALI [Suspect]
     Active Substance: RIBOCICLIB
     Dosage: 200 MG, QD
     Route: 065
     Dates: start: 20201204, end: 20210209
  4. KISQALI [Suspect]
     Active Substance: RIBOCICLIB
     Dosage: 200 MG, (3X)
     Route: 065
     Dates: start: 20210209, end: 20210209
  5. LETROZOLE [Suspect]
     Active Substance: LETROZOLE
     Indication: Breast cancer metastatic
     Dosage: UNK
     Route: 005
     Dates: start: 20190927

REACTIONS (11)
  - Bradycardia [Unknown]
  - Arrhythmia [Unknown]
  - Extrasystoles [Unknown]
  - White blood cell count decreased [Unknown]
  - Anaemia [Unknown]
  - Skin lesion [Unknown]
  - Rash maculo-papular [Recovering/Resolving]
  - Pruritus [Recovered/Resolved]
  - Skin exfoliation [Recovering/Resolving]
  - Pain in extremity [Unknown]
  - Erythema [Recovering/Resolving]

NARRATIVE: CASE EVENT DATE: 20191201
